FAERS Safety Report 12653770 (Version 1)
Quarter: 2016Q3

REPORT INFORMATION
  Report Type: Spontaneous
  Country: US (occurrence: US)
  Receive Date: 20160816
  Receipt Date: 20160816
  Transmission Date: 20161109
  Serious: Yes (Life-Threatening, Hospitalization, Other)
  Sender: FDA-Public Use
  Company Number: US-BRISTOL-MYERS SQUIBB COMPANY-BMS-2016-067007

PATIENT
  Age: 86 Year
  Sex: Male

DRUGS (1)
  1. ELIQUIS [Suspect]
     Active Substance: APIXABAN
     Indication: PRODUCT USED FOR UNKNOWN INDICATION
     Dosage: 2.5 MG, BID
     Route: 065
     Dates: start: 201508, end: 20160105

REACTIONS (4)
  - Packed red blood cell transfusion [Unknown]
  - Anaemia [Unknown]
  - Rectal haemorrhage [Recovered/Resolved]
  - Platelet transfusion [Unknown]

NARRATIVE: CASE EVENT DATE: 20160101
